FAERS Safety Report 16754374 (Version 2)
Quarter: 2019Q3

REPORT INFORMATION
  Report Type: Spontaneous
  Country: US (occurrence: US)
  Receive Date: 20190829
  Receipt Date: 20190927
  Transmission Date: 20191005
  Serious: No
  Sender: FDA-Public Use
  Company Number: US-PFIZER INC-2019364637

PATIENT
  Age: 57 Year
  Sex: Female
  Weight: 68.93 kg

DRUGS (1)
  1. CHANTIX [Suspect]
     Active Substance: VARENICLINE TARTRATE
     Indication: SMOKING CESSATION THERAPY
     Dosage: 1 MG, DAILY
     Route: 048
     Dates: start: 201801

REACTIONS (2)
  - Prescription drug used without a prescription [Unknown]
  - Malaise [Unknown]

NARRATIVE: CASE EVENT DATE: 201801
